FAERS Safety Report 16656214 (Version 2)
Quarter: 2019Q3

REPORT INFORMATION
  Report Type: Spontaneous
  Country: CL (occurrence: CL)
  Receive Date: 20190801
  Receipt Date: 20190809
  Transmission Date: 20191004
  Serious: Yes (Death, Hospitalization, Other)
  Sender: FDA-Public Use
  Company Number: CL-SA-2019SA207050

PATIENT
  Age: 43 Year
  Sex: Male

DRUGS (12)
  1. CLOPIDOGREL [Concomitant]
     Active Substance: CLOPIDOGREL BISULFATE
     Dosage: 75 MG, QD
     Route: 065
  2. CARVEDILOL. [Concomitant]
     Active Substance: CARVEDILOL
     Dosage: 25.5 MG, QD
     Route: 065
  3. ASPIRIN [ACETYLSALICYLIC ACID] [Concomitant]
     Active Substance: ASPIRIN
     Dosage: 100 MG, QD
     Route: 065
  4. AMITRIPTYLINE [Concomitant]
     Active Substance: AMITRIPTYLINE
     Dosage: 25 MG, HS
     Route: 065
  5. ISONIAZIDE [Concomitant]
     Active Substance: ISONIAZID
     Dosage: 100-300MG, QD
     Route: 065
  6. FABRAZYME [Suspect]
     Active Substance: AGALSIDASE BETA
     Indication: FABRY^S DISEASE
     Dosage: 2 DF, QOW
     Route: 041
     Dates: start: 20190530, end: 20190627
  7. ATORVASTATIN [Concomitant]
     Active Substance: ATORVASTATIN
     Dosage: 80 MG, QD
     Route: 065
  8. FOLIC ACID. [Concomitant]
     Active Substance: FOLIC ACID
     Dosage: 2 MG, QD
     Route: 065
  9. PARACETAMOL [Concomitant]
     Active Substance: ACETAMINOPHEN
     Dosage: 1 G, PRN (SOS)
     Route: 065
  10. CAPTOPRIL. [Concomitant]
     Active Substance: CAPTOPRIL
     Dosage: 25 MG, PRN (SOS)
     Route: 065
  11. CARBAMAZEPINE. [Concomitant]
     Active Substance: CARBAMAZEPINE
     Dosage: 200 MG, Q8H
     Route: 065
  12. LACTULOSE. [Concomitant]
     Active Substance: LACTULOSE
     Dosage: 20 ML, Q8H
     Route: 065

REACTIONS (8)
  - Disorientation [Unknown]
  - Condition aggravated [Unknown]
  - Disease complication [Fatal]
  - Ischaemic stroke [Unknown]
  - Cardio-respiratory arrest [Fatal]
  - Dysarthria [Unknown]
  - Hypoglycaemia [Unknown]
  - Mobility decreased [Unknown]

NARRATIVE: CASE EVENT DATE: 201907
